FAERS Safety Report 5225508-0 (Version None)
Quarter: 2007Q1

REPORT INFORMATION
  Report Type: 
  Country: None (occurrence: None)
  Receive Date: 20061201
  Receipt Date: 20060824
  Transmission Date: 20070707
  Serious: No
  Sender: FDA-Public Use
  Company Number: US200608005449

PATIENT
  Age: 31 Year
  Sex: Female
  Weight: 135.1 kg

DRUGS (4)
  1. CYMBALTA [Suspect]
     Indication: ANXIETY
     Dosage: 30 MG
     Dates: start: 20050201
  2. CLONOPIN (CLONAZAPEM) [Concomitant]
  3. MERIDIA [Concomitant]
  4. VITAMINS NOS (VITAMINS NOS) [Concomitant]

REACTIONS (10)
  - ANGER [None]
  - BLOOD PRESSURE INCREASED [None]
  - HEART RATE INCREASED [None]
  - NIGHTMARE [None]
  - OEDEMA PERIPHERAL [None]
  - PANIC ATTACK [None]
  - PRURITUS [None]
  - SWELLING FACE [None]
  - URTICARIA [None]
  - WEIGHT INCREASED [None]
